FAERS Safety Report 13012084 (Version 1)
Quarter: 2016Q4

REPORT INFORMATION
  Report Type: Spontaneous
  Country: US (occurrence: US)
  Receive Date: 20161208
  Receipt Date: 20161208
  Transmission Date: 20170207
  Serious: No
  Sender: FDA-Public Use
  Company Number: None

PATIENT
  Age: 72 Year
  Sex: Female
  Weight: 66.28 kg

DRUGS (5)
  1. MELATONIN [Concomitant]
     Active Substance: MELATONIN
  2. VITAMIN D-CALCIUM [Concomitant]
  3. LYRICA [Suspect]
     Active Substance: PREGABALIN
     Indication: FIBROMYALGIA
     Route: 048
     Dates: start: 201512
  4. TRAZADONE (DESYREL) [Concomitant]
  5. VANLAFAXINE ER [Concomitant]

REACTIONS (2)
  - Amnesia [None]
  - Therapy cessation [None]

NARRATIVE: CASE EVENT DATE: 201606
